FAERS Safety Report 6478083-7 (Version None)
Quarter: 2009Q4

REPORT INFORMATION
  Report Type: 
  Country: None (occurrence: None)
  Receive Date: 20091207
  Receipt Date: 20091120
  Transmission Date: 20100525
  Serious: Yes (Life-Threatening, Hospitalization)
  Sender: FDA-Public Use
  Company Number: MX-MERCK-0911MEX00019

PATIENT
  Age: 10 Year
  Sex: Male
  Weight: 75 kg

DRUGS (6)
  1. SINGULAIR [Suspect]
     Indication: ASTHMA
     Route: 048
     Dates: start: 20050101, end: 20060101
  2. SINGULAIR [Suspect]
     Route: 065
  3. FEXOFENADINE HYDROCHLORIDE [Concomitant]
     Route: 065
  4. FLUTICASONE PROPIONATE AND SALMETEROL XINAFOATE [Concomitant]
     Route: 065
  5. ALBUTEROL SULFATE AND IPRATROPIUM BROMIDE [Concomitant]
     Route: 065
  6. EBASTINE [Concomitant]
     Route: 065

REACTIONS (1)
  - HEPATIC CIRRHOSIS [None]
